FAERS Safety Report 6151405-2 (Version None)
Quarter: 2009Q2

REPORT INFORMATION
  Report Type: 
  Country: None (occurrence: None)
  Receive Date: 20090410
  Receipt Date: 20090402
  Transmission Date: 20091009
  Serious: Yes (Hospitalization)
  Sender: FDA-Public Use
  Company Number: US-BIOGENIDEC-2008BI022547

PATIENT
  Sex: Female
  Weight: 62 kg

DRUGS (4)
  1. AVONEX [Suspect]
     Indication: MULTIPLE SCLEROSIS
     Route: 030
     Dates: start: 19950101, end: 20030101
  2. AVONEX [Suspect]
     Route: 030
     Dates: start: 20030101
  3. PROVIGIL [Concomitant]
     Indication: FATIGUE
  4. GABAPENTIN [Concomitant]
     Indication: DYSAESTHESIA

REACTIONS (6)
  - DYSAESTHESIA [None]
  - FATIGUE [None]
  - INFLUENZA LIKE ILLNESS [None]
  - INTERVERTEBRAL DISC DISORDER [None]
  - MULTIPLE SCLEROSIS RELAPSE [None]
  - VARICOSE VEIN [None]
